FAERS Safety Report 4616148-2 (Version None)
Quarter: 2005Q1

REPORT INFORMATION
  Report Type: 
  Country: None (occurrence: None)
  Receive Date: 20050323
  Receipt Date: 20041126
  Transmission Date: 20050727
  Serious: Yes (Hospitalization)
  Sender: FDA-Public Use
  Company Number: FR-BRISTOL-MYERS SQUIBB COMPANY-12776563

PATIENT
  Age: 78 Year
  Sex: Male
  Weight: 67 kg

DRUGS (10)
  1. APROVEL TABS 150 MG [Suspect]
     Indication: HYPERTENSION
     Dosage: 150MG QD UNTIL 9/24/03,THEN STOPPED;RESUMED 75MG DAILY FROM 1/2004 TO 9/20/2004, THEN DISCONTINUED.
     Route: 048
     Dates: end: 20040920
  2. HYDROCORTISONE [Suspect]
     Indication: HYPONATRAEMIA
     Dosage: INITIALLY ON HIGH DOSES OF 25MG TO 50MG; THEN 40MG; DECREASED FURTHER TO 20MG.
  3. CORDARONE [Concomitant]
  4. PREVISCAN [Concomitant]
  5. DIAMICRON [Concomitant]
  6. LEXOMIL [Concomitant]
  7. STABLON [Concomitant]
  8. AUGMENTIN '125' [Concomitant]
  9. TRIFLUCAN [Concomitant]
  10. SERETIDE [Concomitant]

REACTIONS (6)
  - ADRENAL INSUFFICIENCY [None]
  - ANAEMIA [None]
  - BRONCHITIS CHRONIC [None]
  - CONFUSIONAL STATE [None]
  - DEPRESSION [None]
  - HYPONATRAEMIA [None]
